FAERS Safety Report 8233999-6 (Version None)
Quarter: 2012Q1

REPORT INFORMATION
  Report Type: 
  Country: None (occurrence: None)
  Receive Date: 20120322
  Receipt Date: 20120309
  Transmission Date: 20120608
  Serious: Yes (Hospitalization, Other)
  Sender: FDA-Public Use
  Company Number: 2012SP013398

PATIENT
  Sex: Male

DRUGS (2)
  1. PEGASYS [Suspect]
     Indication: HEPATITIS C
     Dates: start: 20090306, end: 20090605
  2. RIBAVIRIN [Suspect]
     Indication: HEPATITIS C
     Dates: start: 20090306, end: 20090605

REACTIONS (2)
  - GLAUCOMA [None]
  - ALCOHOL USE [None]
